FAERS Safety Report 8560833-7 (Version None)
Quarter: 2012Q3

REPORT INFORMATION
  Report Type: 
  Country: None (occurrence: None)
  Receive Date: 20120727
  Receipt Date: 20120727
  Transmission Date: 20120928
  Serious: Yes (Hospitalization)
  Sender: FDA-Public Use
  Company Number: None

PATIENT
  Age: 79 Year
  Sex: Female
  Weight: 63 kg

DRUGS (11)
  1. PLAVIX [Suspect]
     Indication: CORONARY ARTERY DISEASE
     Dosage: 75MG DAILY PO RECENT
     Route: 048
  2. ALLOPURINOL [Concomitant]
  3. IMDUR [Concomitant]
  4. ASPIRIN [Suspect]
     Indication: CORONARY ARTERY DISEASE
     Dosage: 81MG DAILY PO  CHRONIC
     Route: 048
  5. SERTRALINE HYDROCHLORIDE [Concomitant]
  6. LASIX [Concomitant]
  7. FERROUS SULFATE TAB [Concomitant]
  8. COREG [Concomitant]
  9. LISINOPRIL [Concomitant]
  10. PRAVASTATIN [Concomitant]
  11. METOPROLOL TARTRATE [Concomitant]

REACTIONS (7)
  - NODULE [None]
  - GASTROINTESTINAL ARTERIOVENOUS MALFORMATION [None]
  - ANAEMIA [None]
  - HIATUS HERNIA [None]
  - HAEMORRHOIDS [None]
  - UPPER GASTROINTESTINAL HAEMORRHAGE [None]
  - INFECTION [None]
